FAERS Safety Report 5643677-5 (Version None)
Quarter: 2008Q1

REPORT INFORMATION
  Report Type: 
  Country: None (occurrence: None)
  Receive Date: 20080228
  Receipt Date: 20080222
  Transmission Date: 20080703
  Serious: Yes (Life-Threatening)
  Sender: FDA-Public Use
  Company Number: FR-GILEAD-2008-0015447

PATIENT
  Sex: Male

DRUGS (2)
  1. HEPSERA [Suspect]
     Indication: HEPATITIS B VIRUS
     Route: 048
     Dates: start: 20070301, end: 20071210
  2. PEGASYS [Suspect]
     Indication: HEPATITIS B VIRUS
     Route: 058
     Dates: start: 20070301, end: 20071001

REACTIONS (1)
  - THROMBOCYTOPENIA [None]
